FAERS Safety Report 5309713-0 (Version None)
Quarter: 2007Q2

REPORT INFORMATION
  Report Type: 
  Country: None (occurrence: None)
  Receive Date: 20070427
  Receipt Date: 20060717
  Transmission Date: 20071010
  Serious: Yes (Hospitalization)
  Sender: FDA-Public Use
  Company Number: US-GLAXOSMITHKLINE-A0612516A

PATIENT
  Age: 33 Year
  Sex: Female

DRUGS (6)
  1. ZOFRAN [Suspect]
     Indication: NAUSEA
     Route: 042
  2. DEXAMETHASONE 0.5MG TAB [Concomitant]
  3. ADRIAMYCIN PFS [Concomitant]
  4. VINCRISTINE [Concomitant]
  5. BLEOMYCIN [Concomitant]
  6. DACARBAZINE [Concomitant]

REACTIONS (1)
  - BRADYCARDIA [None]
